FAERS Safety Report 6731431-2 (Version None)
Quarter: 2010Q2

REPORT INFORMATION
  Report Type: 
  Country: None (occurrence: None)
  Receive Date: 20100518
  Receipt Date: 20100518
  Transmission Date: 20101027
  Serious: Yes (Life-Threatening)
  Sender: FDA-Public Use
  Company Number: None

PATIENT
  Age: 6 Year
  Sex: Male
  Weight: 31.7518 kg

DRUGS (1)
  1. SINGULAIR [Suspect]
     Dates: start: 20080808, end: 20080808

REACTIONS (2)
  - DRUG HYPERSENSITIVITY [None]
  - TIC [None]
